FAERS Safety Report 23363639 (Version 1)
Quarter: 2024Q1

REPORT INFORMATION
  Report Type: Report from Study
  Country: BR (occurrence: BR)
  Receive Date: 20240103
  Receipt Date: 20240103
  Transmission Date: 20240409
  Serious: Yes (Other)
  Sender: FDA-Public Use
  Company Number: BR-JNJFOC-20231273266

PATIENT
  Age: 47 Year
  Sex: Female
  Weight: 67 kg

DRUGS (2)
  1. SIMPONI [Suspect]
     Active Substance: GOLIMUMAB
     Indication: Rheumatoid arthritis
     Route: 058
  2. SIMPONI [Suspect]
     Active Substance: GOLIMUMAB

REACTIONS (9)
  - Bedridden [Unknown]
  - Benign small intestinal neoplasm [Unknown]
  - Blood urine present [Unknown]
  - Renal disorder [Unknown]
  - Depression [Unknown]
  - Hypersomnia [Unknown]
  - Anxiety [Unknown]
  - Vomiting [Unknown]
  - Fibromyalgia [Unknown]
